FAERS Safety Report 20247416 (Version 2)
Quarter: 2022Q1

REPORT INFORMATION
  Report Type: Report from Study
  Country: FR (occurrence: FR)
  Receive Date: 20211229
  Receipt Date: 20220114
  Transmission Date: 20220424
  Serious: Yes (Life-Threatening, Hospitalization)
  Sender: FDA-Public Use
  Company Number: FR-Merck Healthcare KGaA-9288946

PATIENT
  Age: 32 Year
  Sex: Female
  Weight: 69 kg

DRUGS (3)
  1. PACLITAXEL [Suspect]
     Active Substance: PACLITAXEL
     Indication: Gestational trophoblastic tumour
     Dosage: 120 MG/M2
     Dates: start: 20190925, end: 20190927
  2. AVELUMAB [Suspect]
     Active Substance: AVELUMAB
     Indication: Gestational trophoblastic tumour
     Dosage: 10 MG/KG,1X/2WEEK
     Route: 042
     Dates: start: 20190531, end: 20190808
  3. THIOTEPA [Suspect]
     Active Substance: THIOTEPA
     Indication: Gestational trophoblastic tumour
     Dosage: 240 MG/M2
     Route: 042
     Dates: start: 20190925, end: 20190927

REACTIONS (3)
  - Sepsis [Recovered/Resolved]
  - Enterocolitis [Recovered/Resolved]
  - Klebsiella infection [Recovered/Resolved]

NARRATIVE: CASE EVENT DATE: 20191010
